FAERS Safety Report 5711812-6 (Version None)
Quarter: 2008Q2

REPORT INFORMATION
  Report Type: 
  Country: None (occurrence: None)
  Receive Date: 20080421
  Receipt Date: 20080409
  Transmission Date: 20081010
  Serious: Yes (Hospitalization, Other)
  Sender: FDA-Public Use
  Company Number: JP-PFIZER INC-2008031647

PATIENT
  Age: 65 Year
  Sex: Female

DRUGS (2)
  1. HALCION [Suspect]
     Dosage: DAILY DOSE:40MG
     Route: 048
     Dates: start: 20080401, end: 20080401
  2. DORAL [Concomitant]
     Route: 048

REACTIONS (3)
  - BLOOD CREATINE PHOSPHOKINASE INCREASED [None]
  - INTENTIONAL OVERDOSE [None]
  - SUICIDE ATTEMPT [None]
